FAERS Safety Report 8830011 (Version 1)
Quarter: 2012Q4

REPORT INFORMATION
  Report Type: Spontaneous
  Country: US (occurrence: None)
  Receive Date: 20121005
  Receipt Date: 20121005
  Transmission Date: 20130627
  Serious: Yes (Other)
  Sender: FDA-Public Use
  Company Number: None

PATIENT
  Age: 42 Year
  Sex: Female

DRUGS (1)
  1. RIBAVIRIN [Suspect]
     Route: 048
     Dates: start: 20120629, end: 20120703

REACTIONS (3)
  - Rash [None]
  - Pain [None]
  - Crying [None]
